FAERS Safety Report 8589290-1 (Version None)
Quarter: 2012Q3

REPORT INFORMATION
  Report Type: 
  Country: None (occurrence: None)
  Receive Date: 20120813
  Receipt Date: 20120420
  Transmission Date: 20120928
  Serious: Yes (Hospitalization, Other)
  Sender: FDA-Public Use
  Company Number: JP-009507513-1208JPN004977

PATIENT

DRUGS (35)
  1. REBETOL [Suspect]
     Route: 048
     Dates: start: 20120229, end: 20120325
  2. URSO 250 [Concomitant]
     Indication: HEPATITIS C
     Route: 048
     Dates: start: 20120209, end: 20120209
  3. GASMOTIN [Concomitant]
     Route: 048
     Dates: start: 20120425, end: 20120517
  4. REBETOL [Suspect]
     Indication: HEPATITIS C
     Route: 048
     Dates: start: 20120215, end: 20120221
  5. ASPIRIN [Concomitant]
     Route: 048
     Dates: start: 20120425, end: 20120517
  6. DOGMATYL [Concomitant]
     Indication: PROPHYLAXIS
     Route: 048
     Dates: start: 20120310, end: 20120328
  7. ZADITEN [Concomitant]
     Indication: PROPHYLAXIS
     Route: 031
     Dates: start: 20120314, end: 20120320
  8. TELAVIC [Suspect]
     Indication: HEPATITIS C
     Route: 048
     Dates: start: 20120215, end: 20120221
  9. GASMOTIN [Concomitant]
     Indication: PROPHYLAXIS
     Route: 048
     Dates: start: 20120219, end: 20120419
  10. BIO THREE [Concomitant]
     Route: 048
     Dates: start: 20120210, end: 20120211
  11. HYALEIN [Concomitant]
     Indication: PROPHYLAXIS
     Route: 031
     Dates: start: 20120314, end: 20120320
  12. TELAVIC [Suspect]
     Route: 048
     Dates: start: 20120222, end: 20120325
  13. DIOVAN [Concomitant]
     Indication: HYPERTENSION
     Route: 048
     Dates: end: 20120419
  14. URSO 250 [Concomitant]
     Route: 048
     Dates: start: 20120425, end: 20120517
  15. PLAVIX [Concomitant]
     Route: 048
     Dates: start: 20120425, end: 20120517
  16. FAMOTIDINE [Concomitant]
     Indication: PROPHYLAXIS
     Route: 048
     Dates: start: 20120209, end: 20120419
  17. PEGASYS [Concomitant]
     Route: 058
     Dates: start: 20120215, end: 20120215
  18. LOXONIN [Concomitant]
     Indication: PROPHYLAXIS
     Route: 061
     Dates: start: 20120322, end: 20120328
  19. PEG-INTRON [Suspect]
     Indication: HEPATITIS C
     Dosage: 1.5MCG/KG/WEEK
     Route: 058
     Dates: start: 20120215, end: 20120323
  20. AMLODIPINE BESYLATE [Concomitant]
     Indication: HYPERTENSION
     Route: 048
     Dates: end: 20120419
  21. FUCIDINE CAP [Concomitant]
     Route: 061
     Dates: start: 20120413, end: 20120419
  22. AMLODIPINE BESYLATE [Concomitant]
     Route: 048
     Dates: start: 20120502, end: 20120517
  23. BISOPROLOL FUMARATE [Concomitant]
     Route: 048
     Dates: start: 20120425, end: 20120517
  24. MIRTAZAPINE [Concomitant]
     Indication: DEPRESSION
     Route: 048
     Dates: start: 20120323, end: 20120328
  25. REBETOL [Suspect]
     Route: 048
     Dates: start: 20120222, end: 20120228
  26. DIOVAN [Concomitant]
     Route: 048
     Dates: start: 20120502, end: 20120517
  27. ASPIRIN [Concomitant]
     Indication: MYOCARDIAL ISCHAEMIA
     Route: 048
     Dates: start: 20120209, end: 20120419
  28. PLAVIX [Concomitant]
     Indication: MYOCARDIAL ISCHAEMIA
     Route: 048
     Dates: start: 20120209, end: 20120419
  29. BISOPROLOL FUMARATE [Concomitant]
     Indication: HYPERTENSION
     Route: 048
     Dates: start: 20120209, end: 20120419
  30. FAMOTIDINE [Concomitant]
     Route: 048
     Dates: start: 20120425, end: 20120517
  31. EXFORGE [Concomitant]
     Indication: HYPERTENSION
     Route: 048
     Dates: start: 20120209, end: 20120222
  32. EXFORGE [Concomitant]
     Route: 048
     Dates: start: 20120425, end: 20120515
  33. ADOFEED [Concomitant]
     Indication: PROPHYLAXIS
     Route: 061
     Dates: start: 20120316, end: 20120325
  34. MEDICON (DEXTROMETHORPHAN HYDROBROMIDE) [Concomitant]
     Route: 048
     Dates: start: 20120417, end: 20120419
  35. HIRUDOID [Concomitant]
     Route: 061
     Dates: start: 20120413, end: 20120419

REACTIONS (4)
  - RENAL DISORDER [None]
  - ANAEMIA [None]
  - DEPRESSION [None]
  - HYPERURICAEMIA [None]
